FAERS Safety Report 8946831 (Version 1)
Quarter: 2012Q4

REPORT INFORMATION
  Report Type: 
  Country: US (occurrence: US)
  Receive Date: 20121205
  Receipt Date: 20121205
  Transmission Date: 20130627
  Serious: Yes (Hospitalization)
  Sender: FDA-Public Use
  Company Number: US-GLAXOSMITHKLINE-A1000192A

PATIENT
  Age: 45 Year
  Sex: Male

DRUGS (1)
  1. FLOLAN [Suspect]
     Indication: PRODUCT USED FOR UNKNOWN INDICATION
     Dosage: 30NGKM Continuous
     Route: 042
     Dates: start: 20111205

REACTIONS (4)
  - Cardiac failure congestive [Unknown]
  - Oedema [Unknown]
  - Pyrexia [Unknown]
  - Catheter site haemorrhage [Unknown]
